FAERS Safety Report 5297934-5 (Version None)
Quarter: 2007Q2

REPORT INFORMATION
  Report Type: 
  Country: None (occurrence: None)
  Receive Date: 20070416
  Receipt Date: 20070413
  Transmission Date: 20071010
  Serious: Yes (Life-Threatening)
  Sender: FDA-Public Use
  Company Number: JP-GLAXOSMITHKLINE-B0463157A

PATIENT
  Age: 28 Year
  Sex: Female

DRUGS (2)
  1. PAXIL [Suspect]
     Indication: DECREASED APPETITE
     Dosage: 5MG TWICE PER DAY
     Route: 048
     Dates: start: 20070210, end: 20070220
  2. SOLANAX [Concomitant]
     Indication: PANIC ATTACK
     Dosage: .8MG PER DAY
     Route: 048
     Dates: start: 20061226

REACTIONS (7)
  - ABULIA [None]
  - CONSTIPATION [None]
  - DEPRESSED MOOD [None]
  - DISABILITY [None]
  - IRRITABILITY [None]
  - LISTLESS [None]
  - SUICIDAL IDEATION [None]
